FAERS Safety Report 9299095 (Version 2)
Quarter: 2014Q3

REPORT INFORMATION
  Report Type: Spontaneous
  Country: US (occurrence: US)
  Receive Date: 20130520
  Receipt Date: 20140814
  Transmission Date: 20150326
  Serious: Yes (Hospitalization, Disabling, Other)
  Sender: FDA-Public Use
  Company Number: US-009507513-1305USA010789

PATIENT
  Sex: Female
  Weight: 63.49 kg

DRUGS (2)
  1. NUVARING [Suspect]
     Active Substance: ETHINYL ESTRADIOL\ETONOGESTREL
     Dosage: 1 UNK, UNK
     Route: 067
     Dates: start: 20060102, end: 20060328
  2. NUVARING [Suspect]
     Active Substance: ETHINYL ESTRADIOL\ETONOGESTREL
     Indication: CONTRACEPTION
     Route: 067

REACTIONS (8)
  - Coagulopathy [Unknown]
  - Hypertension [Unknown]
  - Antiphospholipid antibodies positive [Unknown]
  - Antinuclear antibody positive [Unknown]
  - Protein S deficiency [Unknown]
  - Tricuspid valve incompetence [Unknown]
  - Flat affect [Unknown]
  - Pulmonary embolism [Unknown]

NARRATIVE: CASE EVENT DATE: 20060401
